FAERS Safety Report 18600312 (Version 1)
Quarter: 2020Q4

REPORT INFORMATION
  Report Type: Report from Study
  Country: JP (occurrence: JP)
  Receive Date: 20201210
  Receipt Date: 20201210
  Transmission Date: 20210114
  Serious: Yes (Other)
  Sender: FDA-Public Use
  Company Number: JP-INCYTE CORPORATION-2020IN009299

PATIENT

DRUGS (3)
  1. BAYASPIRIN [Concomitant]
     Active Substance: ASPIRIN
     Indication: POLYCYTHAEMIA VERA
     Dosage: 100 MG
     Route: 048
     Dates: end: 20181210
  2. JAKAVI [Suspect]
     Active Substance: RUXOLITINIB
     Indication: POLYCYTHAEMIA VERA
     Dosage: 10 MG, QD
     Route: 048
     Dates: start: 20161209, end: 20191015
  3. JAKAVI [Suspect]
     Active Substance: RUXOLITINIB
     Dosage: 5 MG, QD
     Route: 048
     Dates: start: 20191015

REACTIONS (2)
  - Lymphocyte count decreased [Unknown]
  - Platelet count decreased [Not Recovered/Not Resolved]

NARRATIVE: CASE EVENT DATE: 20191015
